FAERS Safety Report 8435269-X (Version None)
Quarter: 2012Q2

REPORT INFORMATION
  Report Type: 
  Country: None (occurrence: None)
  Receive Date: 20120614
  Receipt Date: 20120531
  Transmission Date: 20120825
  Serious: Yes (Other)
  Sender: FDA-Public Use
  Company Number: GB-MYLANLABS-2012S1000151

PATIENT
  Age: 70 Year
  Sex: Female
  Weight: 77.5 kg

DRUGS (5)
  1. RAMIPRIL [Concomitant]
     Indication: PRODUCT USED FOR UNKNOWN INDICATION
     Dates: start: 20050101, end: 20060501
  2. AMLODIPINE BESYLATE [Suspect]
     Indication: ESSENTIAL HYPERTENSION
     Route: 048
     Dates: start: 20051221, end: 20111111
  3. CANDESARTAN CILEXETIL [Concomitant]
     Indication: ESSENTIAL HYPERTENSION
     Route: 048
     Dates: start: 20060612
  4. DOXAZOSIN MESYLATE [Concomitant]
     Indication: HYPERTENSION
     Dates: start: 20090701, end: 20100201
  5. BENDROFLUMETHIAZIDE [Concomitant]
     Indication: ESSENTIAL HYPERTENSION
     Route: 048
     Dates: start: 20110601

REACTIONS (6)
  - SKIN ULCER [None]
  - DERMATITIS [None]
  - FIBRIN D DIMER INCREASED [None]
  - DERMATOSIS [None]
  - OEDEMA PERIPHERAL [None]
  - CELLULITIS [None]
